FAERS Safety Report 6129770 (Version 22)
Quarter: 2013Q4

REPORT INFORMATION
  Report Type: Spontaneous
  Country: US (occurrence: US)
  Receive Date: 20060918
  Receipt Date: 20131205
  Transmission Date: 20140711
  Serious: Yes (Hospitalization, Other)
  Sender: FDA-Public Use
  Company Number: PHEH2006US11407

PATIENT
  Age: 72 Year
  Sex: Male

DRUGS (27)
  1. ZOMETA [Suspect]
     Indication: PLASMA CELL MYELOMA
     Dates: start: 20030205, end: 200507
  2. ZOMETA [Suspect]
     Route: 042
     Dates: end: 20050825
  3. THALIDOMIDE [Concomitant]
  4. DECADRON                                /CAN/ [Concomitant]
  5. GLYBURIDE [Concomitant]
  6. ARANESP [Concomitant]
  7. LISINOPRIL W/HYDROCHLOROTHIAZIDE [Concomitant]
  8. ATENOLOL [Concomitant]
  9. PROCRIT                            /00909301/ [Concomitant]
  10. ASPIRIN ^BAYER^ [Concomitant]
  11. MULTIVITAMIN ^LAPPE^ [Concomitant]
  12. ACTOS                                   /USA/ [Concomitant]
  13. PENICILLIN VK [Concomitant]
     Dosage: UNK UKN, UNK
  14. PERIDEX [Concomitant]
  15. DOXIL [Concomitant]
  16. THALIDOMID [Concomitant]
  17. FLEXERIL [Concomitant]
  18. LORTAB [Concomitant]
  19. DEXAMETHASONE [Concomitant]
  20. COUMADIN [Concomitant]
     Dosage: 1 DF, QD
     Route: 048
  21. ZOSYN [Concomitant]
     Dosage: 3.375 MG, Q6H
     Route: 042
  22. LEVAQUIN [Concomitant]
     Dosage: 500 MG, QD
     Route: 048
  23. GLIPIZIDE [Concomitant]
     Dosage: 2.5 MG, QD
     Route: 048
  24. NEURONTIN [Concomitant]
     Dosage: 300 MG, TID
     Route: 048
  25. SIMETHICONE [Concomitant]
     Dosage: 40 MG, PRN
  26. TRAMADOL [Concomitant]
     Dosage: 100 MG, Q4H, PRN
  27. ENALAPRIL MALEATE [Concomitant]
     Dosage: 1 DF, QD
     Route: 048

REACTIONS (84)
  - Abdominal pain [Recovered/Resolved]
  - Osteonecrosis of jaw [Unknown]
  - Osteomyelitis [Unknown]
  - Pain [Unknown]
  - Hypophagia [Unknown]
  - Deformity [Unknown]
  - Emotional distress [Unknown]
  - Anxiety [Unknown]
  - General physical health deterioration [Unknown]
  - Decreased interest [Unknown]
  - Life expectancy shortened [Unknown]
  - Pain in jaw [Unknown]
  - Infection [Unknown]
  - Excessive granulation tissue [Unknown]
  - Wound complication [Unknown]
  - Impaired healing [Unknown]
  - Tooth fracture [Unknown]
  - Pathological fracture [Unknown]
  - Osteopenia [Unknown]
  - Osteoarthritis [Unknown]
  - Intervertebral disc degeneration [Unknown]
  - Bone lesion [Unknown]
  - Blood creatinine increased [Unknown]
  - Blood urea increased [Unknown]
  - Fall [Unknown]
  - Syringomyelia [Unknown]
  - Cervical myelopathy [Unknown]
  - Spinal column injury [Unknown]
  - Pneumonia aspiration [Unknown]
  - Neuropathy peripheral [Unknown]
  - Urinary tract infection [Unknown]
  - Pseudomonal bacteraemia [Unknown]
  - Hypoaesthesia [Unknown]
  - Paraesthesia [Unknown]
  - Muscular weakness [Recovered/Resolved with Sequelae]
  - Thrombosis [Unknown]
  - Pneumonia [Unknown]
  - Lung infiltration [Unknown]
  - Pleural effusion [Unknown]
  - Cardiomegaly [Unknown]
  - Aortic dilatation [Unknown]
  - Intervertebral disc protrusion [Unknown]
  - Spinal cord compression [Unknown]
  - Neurogenic bladder [Unknown]
  - Neurogenic bowel [Unknown]
  - Spondylolisthesis [Unknown]
  - Spinal fracture [Unknown]
  - Pancytopenia [Unknown]
  - Amnesia [Unknown]
  - Skin ulcer [Unknown]
  - Dementia [Unknown]
  - Thrombocytopenia [Unknown]
  - Gingival pain [Unknown]
  - Gingival erythema [Unknown]
  - Gingival oedema [Unknown]
  - Exposed bone in jaw [Unknown]
  - Purulent discharge [Unknown]
  - Oral cavity fistula [Unknown]
  - Loose tooth [Unknown]
  - Osteosclerosis [Unknown]
  - Primary sequestrum [Unknown]
  - Bacterial disease carrier [Unknown]
  - Insomnia [Unknown]
  - Dehydration [Unknown]
  - Dysphagia [Unknown]
  - Anaemia [Unknown]
  - Blood potassium increased [Unknown]
  - Mucosal inflammation [Unknown]
  - Dizziness [Unknown]
  - Fatigue [Unknown]
  - Pain in extremity [Unknown]
  - Hyperglycaemia [Unknown]
  - Swelling [Unknown]
  - Back pain [Unknown]
  - Malaise [Unknown]
  - Epicondylitis [Unknown]
  - Exostosis [Unknown]
  - Mobility decreased [Unknown]
  - Balance disorder [Unknown]
  - Excoriation [Unknown]
  - Asthenia [Unknown]
  - Oedema peripheral [Unknown]
  - Ligament calcification [Unknown]
  - Monoplegia [Unknown]
